FAERS Safety Report 4740848-7 (Version None)
Quarter: 2005Q3

REPORT INFORMATION
  Report Type: 
  Country: None (occurrence: None)
  Receive Date: 20050810
  Receipt Date: 20041115
  Transmission Date: 20060218
  Serious: No
  Sender: FDA-Public Use
  Company Number: US-GLAXOSMITHKLINE-A0533838A

PATIENT
  Age: 77 Year
  Sex: Female

DRUGS (4)
  1. TAGAMET HB 200 [Suspect]
  2. PRILOSEC [Concomitant]
  3. PEPCID [Concomitant]
  4. ZANTAC [Concomitant]

REACTIONS (4)
  - DIARRHOEA [None]
  - DRUG INEFFECTIVE [None]
  - MALAISE [None]
  - NAUSEA [None]
